FAERS Safety Report 7560450-1 (Version None)
Quarter: 2011Q2

REPORT INFORMATION
  Report Type: 
  Country: None (occurrence: None)
  Receive Date: 20110621
  Receipt Date: 20110607
  Transmission Date: 20111010
  Serious: Yes (Other)
  Sender: FDA-Public Use
  Company Number: CA-GENENTECH-319289

PATIENT
  Sex: Female

DRUGS (1)
  1. XOLAIR [Suspect]
     Indication: ASTHMA
     Dosage: 300 MG, Q4W
     Route: 058
     Dates: start: 20070607

REACTIONS (5)
  - BLOOD PRESSURE DECREASED [None]
  - INFECTION [None]
  - PRODUCTIVE COUGH [None]
  - ASTHMA [None]
  - PULMONARY CONGESTION [None]
